FAERS Safety Report 9909585 (Version 2)
Quarter: 2014Q2

REPORT INFORMATION
  Report Type: Report from Study
  Country: IT (occurrence: IT)
  Receive Date: 20140219
  Receipt Date: 20140401
  Transmission Date: 20141212
  Serious: Yes (Hospitalization, Disabling)
  Sender: FDA-Public Use
  Company Number: IT-PFIZER INC-2014037602

PATIENT
  Age: 85 Year
  Sex: Female
  Weight: 58 kg

DRUGS (17)
  1. EPLERENONE [Suspect]
     Indication: CARDIAC FAILURE CHRONIC
     Dosage: UNK
     Dates: start: 20131017, end: 20131023
  2. NAPRILENE [Concomitant]
     Indication: HYPERTENSION
     Dosage: UNK
     Dates: start: 20130416
  3. CONGESCOR [Concomitant]
     Indication: CARDIAC FAILURE CHRONIC
     Dosage: UNK
     Dates: start: 20130416
  4. TORVAST [Concomitant]
     Indication: HYPERCHOLESTEROLAEMIA
     Dosage: UNK
     Dates: end: 20131016
  5. LASIX [Concomitant]
     Indication: CARDIAC FAILURE CHRONIC
     Dosage: UNK
     Dates: start: 20130416
  6. SELEPARINA [Concomitant]
     Indication: PROPHYLAXIS
     Dosage: UNK
     Dates: start: 20131010, end: 20131017
  7. TACHIPIRINA [Concomitant]
     Indication: PYREXIA
     Dosage: UNK
     Dates: start: 20131010, end: 20131016
  8. CIPROXIN [Concomitant]
     Indication: URINARY TRACT INFECTION
     Dosage: UNK
     Dates: start: 20131012, end: 20131017
  9. CARDIRENE [Concomitant]
     Indication: CARDIAC FAILURE CHRONIC
     Dosage: UNK
  10. ALLOPURINOL [Concomitant]
     Indication: HYPERURICAEMIA
     Dosage: UNK
     Dates: end: 20131009
  11. MONOCINQUE [Concomitant]
     Indication: CARDIAC FAILURE CHRONIC
     Dosage: UNK
     Dates: start: 20131018
  12. MORPHIN [Concomitant]
     Indication: CARDIAC FAILURE CHRONIC
     Dosage: UNK
     Dates: start: 20131010, end: 20131010
  13. NIFEDIPINE [Concomitant]
     Indication: HYPERTENSION
     Dosage: UNK
     Dates: start: 20131010, end: 20131010
  14. BICARBONATE [Concomitant]
     Indication: CARDIAC FAILURE
     Dosage: UNK
     Dates: start: 20131010, end: 20131010
  15. OXYGEN [Concomitant]
     Indication: SUPPORTIVE CARE
     Dosage: UNK
     Dates: start: 20131010, end: 20131016
  16. NACL [Concomitant]
     Indication: RENAL FAILURE CHRONIC
     Dosage: UNK
     Dates: start: 20131014, end: 20131024
  17. NITRODERM TTS [Concomitant]
     Indication: CARDIAC FAILURE CHRONIC

REACTIONS (2)
  - Condition aggravated [Not Recovered/Not Resolved]
  - Nervous system disorder [Not Recovered/Not Resolved]
